FAERS Safety Report 19859033 (Version 1)
Quarter: 2021Q3

REPORT INFORMATION
  Report Type: Spontaneous
  Country: US (occurrence: US)
  Receive Date: 20210920
  Receipt Date: 20210920
  Transmission Date: 20211014
  Serious: Yes (Hospitalization)
  Sender: FDA-Public Use
  Company Number: None

PATIENT
  Sex: Female

DRUGS (52)
  1. HUMALOG [Concomitant]
     Active Substance: INSULIN LISPRO
  2. HYDROCO/APAP [Concomitant]
     Active Substance: ACETAMINOPHEN\HYDROCODONE
  3. LANTUS SOLOS [Concomitant]
  4. PRAZOSIN HCL [Concomitant]
     Active Substance: PRAZOSIN HYDROCHLORIDE
  5. PROMETH/CPO [Concomitant]
  6. QUETAPINE [Concomitant]
     Active Substance: QUETIAPINE
  7. DIMETHYL FUM  240MG CAP [Suspect]
     Active Substance: DIMETHYL FUMARATE
     Indication: MULTIPLE SCLEROSIS
     Route: 048
     Dates: start: 20201103
  8. BUSPIRONE [Concomitant]
     Active Substance: BUSPIRONE HYDROCHLORIDE
  9. DOXYCYCL HYC [Concomitant]
     Active Substance: DOXYCYCLINE HYCLATE
  10. IPRATRPIUM ALBUTER [Concomitant]
  11. PAIN RELIVER [Concomitant]
  12. POT CITRA ER [Concomitant]
  13. HYDROXYZ HCL [Concomitant]
     Active Substance: HYDROXYZINE HYDROCHLORIDE
  14. LAMOTRIGINE. [Concomitant]
     Active Substance: LAMOTRIGINE
  15. NYSTATIN. [Concomitant]
     Active Substance: NYSTATIN
  16. OMEPRAZOLE. [Concomitant]
     Active Substance: OMEPRAZOLE
  17. ABILFY [Concomitant]
  18. ATORVASTATIN [Concomitant]
     Active Substance: ATORVASTATIN
  19. LISINOPRIL. [Concomitant]
     Active Substance: LISINOPRIL
  20. POLYEH GLYC [Concomitant]
  21. VIBERZI [Concomitant]
     Active Substance: ELUXADOLINE
  22. DALFAMPRIDINE 10 MG ER TAB [Suspect]
     Active Substance: DALFAMPRIDINE
     Indication: MULTIPLE SCLEROSIS
     Route: 048
     Dates: start: 20190628
  23. AZITHROMYCIN ANHYDROUS. [Concomitant]
     Active Substance: AZITHROMYCIN ANHYDROUS
  24. CARVEDILOL. [Concomitant]
     Active Substance: CARVEDILOL
  25. CITALOPRAM [Concomitant]
     Active Substance: CITALOPRAM HYDROBROMIDE
  26. FIASP FLEX [Concomitant]
  27. LORATADINE. [Concomitant]
     Active Substance: LORATADINE
  28. PANTPRAZOLE [Concomitant]
  29. ALLOPURINOL. [Concomitant]
     Active Substance: ALLOPURINOL
  30. CODEINE SULF [Concomitant]
  31. LANTUS [Concomitant]
     Active Substance: INSULIN GLARGINE
  32. POT CL MICRO ER [Concomitant]
  33. PREDNISONE. [Concomitant]
     Active Substance: PREDNISONE
  34. PROMETHAZINE [Concomitant]
     Active Substance: PROMETHAZINE HYDROCHLORIDE
  35. BUPROPION. [Concomitant]
     Active Substance: BUPROPION
  36. VITAMIN D3 [Concomitant]
     Active Substance: CHOLECALCIFEROL
  37. DEXAMETHASON [Concomitant]
     Active Substance: DEXAMETHASONE
  38. LEVOTHYROXIN [Concomitant]
     Active Substance: LEVOTHYROXINE
  39. METOCLOPRAM [Concomitant]
     Active Substance: METOCLOPRAMIDE
  40. NEO/POLY/DEX OP [Concomitant]
  41. NYSTOP [Concomitant]
     Active Substance: NYSTATIN
  42. OXCARBAZEPIN [Concomitant]
     Active Substance: OXCARBAZEPINE
  43. REFRESH OPTIVE [Concomitant]
     Active Substance: CARBOXYMETHYLCELLULOSE SODIUM\GLYCERIN
  44. BENZONATATE. [Concomitant]
     Active Substance: BENZONATATE
  45. FLUCONAZOLE. [Concomitant]
     Active Substance: FLUCONAZOLE
  46. FUROSEMIDE. [Concomitant]
     Active Substance: FUROSEMIDE
  47. GABAPENTIN. [Concomitant]
     Active Substance: GABAPENTIN
  48. MUCINEX DM [Concomitant]
     Active Substance: DEXTROMETHORPHAN HYDROBROMIDE\GUAIFENESIN
  49. NITROFUARANTIN [Concomitant]
  50. OLOPATADINE. [Concomitant]
     Active Substance: OLOPATADINE
  51. PROCHLORPER [Concomitant]
  52. PYRIDOSTIGM [Concomitant]

REACTIONS (1)
  - COVID-19 [None]
